FAERS Safety Report 4923048-7 (Version None)
Quarter: 2006Q1

REPORT INFORMATION
  Report Type: 
  Country: None (occurrence: None)
  Receive Date: 20060125
  Receipt Date: 20050113
  Transmission Date: 20060701
  Serious: Yes (Other)
  Sender: FDA-Public Use
  Company Number: HQWYE494917NOV04

PATIENT
  Age: 85 Year
  Sex: Male

DRUGS (19)
  1. CORDARONE [Suspect]
     Indication: ARRHYTHMIA
     Dosage: 200 MG 1X PER 1 DAY, ORAL
     Route: 048
     Dates: start: 20040101, end: 20040101
  2. ASPIRIN [Concomitant]
  3. OMEGA 3 (FISH OIL) [Concomitant]
  4. COUMADIN [Concomitant]
  5. MONOPRIL [Concomitant]
  6. COREG [Concomitant]
  7. PROSCAR [Concomitant]
  8. LASIX [Concomitant]
  9. K-DUR 10 [Concomitant]
  10. TOPROL-XL [Concomitant]
  11. VASOTEC [Concomitant]
  12. PROZAC [Concomitant]
  13. CELEBREX [Concomitant]
  14. LANOXIN [Concomitant]
  15. ASCORBIC ACID [Concomitant]
  16. VITAMIN E [Concomitant]
  17. MULTIVITAMINS, COMBINATIONS (MULTIVITAMINS, COMBINATION) [Concomitant]
  18. ACETAMINOPHEN [Concomitant]
  19. IRON (IRON) [Concomitant]

REACTIONS (3)
  - NEUROPATHY [None]
  - NEUROPATHY PERIPHERAL [None]
  - VESTIBULAR DISORDER [None]
